FAERS Safety Report 8734218 (Version 2)
Quarter: 2012Q4

REPORT INFORMATION
  Report Type: Report from Study
  Country: NL (occurrence: NL)
  Receive Date: 20120821
  Receipt Date: 20121009
  Transmission Date: 20130627
  Serious: Yes (Hospitalization)
  Sender: FDA-Public Use
  Company Number: NL-PFIZER INC-2012199839

PATIENT
  Age: 45 Year
  Sex: Female
  Weight: 121 kg

DRUGS (6)
  1. GENOTROPIN [Suspect]
     Indication: GROWTH HORMONE DEFICIENCY
     Dosage: 1.2 mg, 7wk
     Route: 058
     Dates: start: 20040115, end: 20050224
  2. TRIGYNON [Concomitant]
     Indication: HYPOGONADISM
     Dosage: UNK
     Dates: start: 19930715
  3. SEROXAT [Concomitant]
     Indication: NEUROSIS
     Dosage: UNK
     Dates: start: 19990916
  4. LEVOTHYROXINE [Concomitant]
     Indication: BLOOD THYROID STIMULATING HORMONE DECREASED
     Dosage: UNK
     Dates: start: 19961115
  5. LEVOTHYROXINE [Concomitant]
     Indication: PRIMARY HYPOTHYROIDISM
  6. CORTISONE ACETATE [Concomitant]
     Indication: BLOOD CORTICOTROPHIN DECREASED
     Dosage: UNK
     Dates: start: 19961115

REACTIONS (1)
  - Caesarean section [Unknown]
